FAERS Safety Report 20200953 (Version 2)
Quarter: 2021Q4

REPORT INFORMATION
  Report Type: Spontaneous
  Country: JP (occurrence: JP)
  Receive Date: 20211217
  Receipt Date: 20211224
  Transmission Date: 20220303
  Serious: Yes (Hospitalization)
  Sender: FDA-Public Use
  Company Number: JP-UCBJ-CD202111149UCBPHAPROD

PATIENT
  Sex: Male

DRUGS (7)
  1. CIMZIA [Suspect]
     Active Substance: CERTOLIZUMAB PEGOL
     Indication: Psoriasis
     Dosage: 400 MILLIGRAM, EV 2 WEEKS(QOW)
     Route: 058
     Dates: start: 20210827, end: 20211119
  2. CLOBETASOL [Concomitant]
     Active Substance: CLOBETASOL
     Indication: Psoriasis
     Route: 062
     Dates: end: 20210924
  3. VOALLA [Concomitant]
     Indication: Psoriasis
     Route: 062
     Dates: end: 20210924
  4. GLYDIL [Concomitant]
     Indication: Psoriasis
     Route: 062
     Dates: end: 20210924
  5. LIDOMEX:CREAM [Concomitant]
     Indication: Psoriasis
     Route: 062
     Dates: end: 20210924
  6. ANTEBATE:CREAM [Concomitant]
     Indication: Psoriasis
     Route: 062
     Dates: end: 20210924
  7. ALLELOCK [Concomitant]
     Active Substance: OLOPATADINE HYDROCHLORIDE
     Indication: Psoriasis
     Route: 048
     Dates: end: 20210924

REACTIONS (3)
  - Psoriasis [Recovering/Resolving]
  - Paradoxical drug reaction [Recovering/Resolving]
  - Therapeutic product ineffective [Unknown]

NARRATIVE: CASE EVENT DATE: 20211119
